FAERS Safety Report 4623736-6 (Version None)
Quarter: 2005Q1

REPORT INFORMATION
  Report Type: 
  Country: None (occurrence: None)
  Receive Date: 20050331
  Receipt Date: 20050322
  Transmission Date: 20050727
  Serious: Yes (Other)
  Sender: FDA-Public Use
  Company Number: PHBS2005JP04261

PATIENT

DRUGS (3)
  1. SANDOSTATIN LAR [Suspect]
     Dosage: UNK, QMO
     Route: 030
  2. HUMACART-N [Concomitant]
  3. SANDOSTATIN [Suspect]
     Dosage: 100 UG/DAY
     Dates: end: 20041001

REACTIONS (2)
  - HYPERHIDROSIS [None]
  - LOSS OF CONSCIOUSNESS [None]
